FAERS Safety Report 5530856-0 (Version None)
Quarter: 2007Q4

REPORT INFORMATION
  Report Type: 
  Country: None (occurrence: None)
  Receive Date: 20071130
  Receipt Date: 20071128
  Transmission Date: 20080405
  Serious: Yes (Death, Hospitalization)
  Sender: FDA-Public Use
  Company Number: IL-SANOFI-SYNTHELABO-F01200701500

PATIENT
  Sex: Male
  Weight: 70 kg

DRUGS (3)
  1. LEUCOVORIN CALCIUM [Suspect]
     Route: 041
     Dates: start: 20071031, end: 20071031
  2. FLUOROURACIL [Suspect]
     Route: 041
     Dates: start: 20071031, end: 20071031
  3. OXALIPLATIN [Suspect]
     Indication: COLON CANCER
     Route: 041
     Dates: start: 20071031, end: 20071031

REACTIONS (1)
  - STAPHYLOCOCCAL SEPSIS [None]
